FAERS Safety Report 10353248 (Version 1)
Quarter: 2014Q3

REPORT INFORMATION
  Report Type: Spontaneous
  Country: US (occurrence: US)
  Receive Date: 20140730
  Receipt Date: 20140730
  Transmission Date: 20150326
  Serious: Yes (Other)
  Sender: FDA-Public Use
  Company Number: US-ELI_LILLY_AND_COMPANY-US201407007227

PATIENT
  Sex: Male

DRUGS (9)
  1. DIABETIC TUSSIN [Concomitant]
  2. HUMALOG [Suspect]
     Active Substance: INSULIN LISPRO
     Indication: TYPE 2 DIABETES MELLITUS
     Dosage: 16 U, BID
     Route: 065
     Dates: start: 2011
  3. OMEPRAZOLE. [Concomitant]
     Active Substance: OMEPRAZOLE
  4. TORSEMIDE. [Concomitant]
     Active Substance: TORSEMIDE
  5. ASPIRIN. [Concomitant]
     Active Substance: ASPIRIN
     Dosage: 81 MG, UNK
  6. CARVEDILOL. [Concomitant]
     Active Substance: CARVEDILOL
  7. CALCIUM [Concomitant]
     Active Substance: CALCIUM
  8. LEVOFLOXACIN [Concomitant]
     Active Substance: LEVOFLOXACIN
     Dosage: 500 MG, UNK
  9. ATORVASTATIN [Concomitant]
     Active Substance: ATORVASTATIN

REACTIONS (3)
  - Incorrect dose administered [Unknown]
  - Renal disorder [Unknown]
  - Gait disturbance [Unknown]
